FAERS Safety Report 8212440-3 (Version None)
Quarter: 2012Q1

REPORT INFORMATION
  Report Type: 
  Country: None (occurrence: None)
  Receive Date: 20120315
  Receipt Date: 20120308
  Transmission Date: 20120608
  Serious: Yes (Hospitalization)
  Sender: FDA-Public Use
  Company Number: US-GLAXOSMITHKLINE-A0889226A

PATIENT
  Age: 80 Year
  Sex: Female

DRUGS (1)
  1. AVANDIA [Suspect]
     Indication: TYPE 2 DIABETES MELLITUS
     Dosage: 2MG PER DAY
     Route: 048
     Dates: start: 20061001, end: 20071201

REACTIONS (9)
  - CARDIAC FAILURE CONGESTIVE [None]
  - ECONOMIC PROBLEM [None]
  - PAIN [None]
  - CARDIOVASCULAR DISORDER [None]
  - ANHEDONIA [None]
  - ASTHENIA [None]
  - EMOTIONAL DISTRESS [None]
  - CORONARY ARTERY BYPASS [None]
  - FEAR [None]
